FAERS Safety Report 9252641 (Version 1)
Quarter: 2013Q2

REPORT INFORMATION
  Report Type: Spontaneous
  Country: FR (occurrence: FR)
  Receive Date: 20130424
  Receipt Date: 20130424
  Transmission Date: 20140414
  Serious: Yes (Life-Threatening)
  Sender: FDA-Public Use
  Company Number: FR-GENZYME-FABR-1003196

PATIENT
  Sex: Male
  Weight: 95 kg

DRUGS (1)
  1. FABRAZYME [Suspect]
     Indication: FABRY^S DISEASE
     Dosage: 1.1 MG/KG, Q2W
     Route: 042
     Dates: start: 20121005

REACTIONS (1)
  - Infusion related reaction [Unknown]
